FAERS Safety Report 7070548-2 (Version None)
Quarter: 2010Q4

REPORT INFORMATION
  Report Type: 
  Country: None (occurrence: None)
  Receive Date: 20101029
  Receipt Date: 20101018
  Transmission Date: 20110411
  Serious: Yes (Other)
  Sender: FDA-Public Use
  Company Number: US-CELGENEUS-163-21880-10101914

PATIENT
  Sex: Male

DRUGS (2)
  1. REVLIMID [Suspect]
     Indication: MYELODYSPLASTIC SYNDROME
     Route: 048
     Dates: start: 20060501
  2. REVLIMID [Suspect]
     Route: 048
     Dates: start: 20100701

REACTIONS (2)
  - FULL BLOOD COUNT DECREASED [None]
  - PITUITARY TUMOUR [None]
